FAERS Safety Report 14628988 (Version 1)
Quarter: 2018Q1

REPORT INFORMATION
  Report Type: Spontaneous
  Country: DK (occurrence: DK)
  Receive Date: 20180313
  Receipt Date: 20180313
  Transmission Date: 20180509
  Serious: Yes (Disabling)
  Sender: FDA-Public Use
  Company Number: DK-MERCK KGAA-2043571

PATIENT
  Age: 49 Year
  Sex: Female

DRUGS (2)
  1. THYROID [Suspect]
     Active Substance: LEVOTHYROXINE\LIOTHYRONINE
     Route: 048
     Dates: start: 20121214
  2. NOVOTHYROX [Suspect]
     Active Substance: LEVOTHYROXINE SODIUM
     Indication: HYPOTHYROIDISM
     Route: 048
     Dates: start: 20100817, end: 20140401

REACTIONS (16)
  - Pelvic pain [Unknown]
  - Headache [Unknown]
  - Muscle atrophy [Unknown]
  - Fibromyalgia [Unknown]
  - Stress [Unknown]
  - Cognitive disorder [Unknown]
  - Depressed mood [Unknown]
  - Joint dislocation [Unknown]
  - Hot flush [Unknown]
  - Back pain [Unknown]
  - Impaired work ability [Unknown]
  - Limb discomfort [Recovered/Resolved]
  - Myalgia [Unknown]
  - Musculoskeletal pain [Unknown]
  - Arthralgia [Unknown]
  - Chest pain [Unknown]

NARRATIVE: CASE EVENT DATE: 20110401
